FAERS Safety Report 5950613-0 (Version None)
Quarter: 2008Q4

REPORT INFORMATION
  Report Type: 
  Country: None (occurrence: None)
  Receive Date: 20081112
  Receipt Date: 20081111
  Transmission Date: 20090506
  Serious: Yes (Disabling)
  Sender: FDA-Public Use
  Company Number: DE-JNJFOC-20081102465

PATIENT
  Age: 54 Year
  Sex: Male

DRUGS (2)
  1. TAVANIC [Suspect]
     Indication: PROSTATITIS
     Route: 048
  2. PROSTAGUTT [Concomitant]
     Indication: PROSTATITIS
     Route: 048

REACTIONS (2)
  - AGEUSIA [None]
  - HYPOSMIA [None]
